FAERS Safety Report 15269655 (Version 1)
Quarter: 2018Q3

REPORT INFORMATION
  Report Type: Spontaneous
  Country: US (occurrence: US)
  Receive Date: 20180813
  Receipt Date: 20180813
  Transmission Date: 20181010
  Serious: Yes (Hospitalization, Other)
  Sender: FDA-Public Use
  Company Number: US-SUN PHARMACEUTICAL INDUSTRIES LTD-2018US-169955

PATIENT
  Age: 59 Year
  Sex: Male

DRUGS (1)
  1. LITHIUM. [Suspect]
     Active Substance: LITHIUM
     Indication: BIPOLAR DISORDER
     Dosage: UNK
     Route: 065

REACTIONS (4)
  - Nephropathy [Recovering/Resolving]
  - Hyperparathyroidism [Unknown]
  - Nephrogenic diabetes insipidus [Recovering/Resolving]
  - Renal failure [Unknown]
